FAERS Safety Report 6914033-4 (Version None)
Quarter: 2010Q3

REPORT INFORMATION
  Report Type: 
  Country: None (occurrence: None)
  Receive Date: 20100809
  Receipt Date: 20100729
  Transmission Date: 20110219
  Serious: Yes (Hospitalization, Other)
  Sender: FDA-Public Use
  Company Number: PHHY2010BR20194

PATIENT
  Sex: Female
  Weight: 54 kg

DRUGS (1)
  1. FEMARA [Suspect]
     Indication: BREAST CANCER
     Dosage: 2.5 MG, DAILY
     Route: 048
     Dates: start: 20100101

REACTIONS (5)
  - ADENOCARCINOMA [None]
  - BIOPSY BONE [None]
  - BONE SARCOMA [None]
  - FIBROSIS [None]
  - METASTASES TO BONE [None]
